FAERS Safety Report 4471560-X (Version None)
Quarter: 2004Q4

REPORT INFORMATION
  Report Type: 
  Country: None (occurrence: None)
  Receive Date: 20041012
  Receipt Date: 20041005
  Transmission Date: 20050328
  Serious: Yes (Death)
  Sender: FDA-Public Use
  Company Number: JPKYO-S-20040036

PATIENT
  Age: 80 Year
  Sex: Male

DRUGS (1)
  1. NAVELBINE [Suspect]
     Indication: NON-SMALL CELL LUNG CANCER
     Dosage: 25MGM2 PER DAY
     Route: 042
     Dates: start: 20040917, end: 20040924

REACTIONS (1)
  - LEUKOPENIA [None]
